FAERS Safety Report 10239703 (Version 1)
Quarter: 2014Q2

REPORT INFORMATION
  Report Type: Spontaneous
  Country: US (occurrence: None)
  Receive Date: 20140612
  Receipt Date: 20140612
  Transmission Date: 20141212
  Serious: Yes (Hospitalization)
  Sender: FDA-Public Use
  Company Number: UCM201406-000092

PATIENT
  Age: 38 Year
  Sex: Male

DRUGS (3)
  1. TOPIRAMATE [Suspect]
  2. CARBAMAZEPINE (CARBAMAZEPINE) [Concomitant]
  3. RISPERIDONE (RISPERIDONE) [Concomitant]

REACTIONS (9)
  - Heat stroke [None]
  - Disseminated intravascular coagulation [None]
  - Renal failure acute [None]
  - Liver injury [None]
  - Hypotension [None]
  - Ischaemic gastritis [None]
  - Upper gastrointestinal haemorrhage [None]
  - Gastric perforation [None]
  - Multi-organ disorder [None]
